FAERS Safety Report 8892781 (Version 1)
Quarter: 2012Q4

REPORT INFORMATION
  Report Type: 
  Country: US (occurrence: US)
  Receive Date: 20121107
  Receipt Date: 20121107
  Transmission Date: 20130627
  Serious: No
  Sender: FDA-Public Use
  Company Number: US-AMGEN-USASP2011059318

PATIENT
  Age: 58 Year
  Sex: Female

DRUGS (6)
  1. ENBREL [Suspect]
     Indication: PRODUCT USED FOR UNKNOWN INDICATION
     Dosage: 50 mg, qwk
     Route: 058
  2. SYNTHROID [Concomitant]
     Dosage: 25 mug, UNK
  3. TOPROL [Concomitant]
     Dosage: 50 mg, UNK
  4. VITAMIN D /00107901/ [Concomitant]
     Dosage: 1000 IU, UNK
  5. BIOTIN [Concomitant]
     Dosage: 1000 mug, UNK
  6. BABY ASPIRIN [Concomitant]
     Dosage: 81 mg, UNK

REACTIONS (2)
  - Injection site bruising [Unknown]
  - Injection site erythema [Unknown]
